FAERS Safety Report 4980442-6 (Version None)
Quarter: 2006Q2

REPORT INFORMATION
  Report Type: 
  Country: None (occurrence: None)
  Receive Date: 20060424
  Receipt Date: 20060414
  Transmission Date: 20061013
  Serious: Yes (Hospitalization)
  Sender: FDA-Public Use
  Company Number: JP-JPN-A200601244

PATIENT
  Age: 3 Year
  Sex: Male
  Weight: 14 kg

DRUGS (20)
  1. ALKERAN [Suspect]
     Indication: STEM CELL TRANSPLANT
     Dosage: 70MGM2 SEE DOSAGE TEXT
     Route: 042
     Dates: start: 20040702, end: 20040710
  2. THIOTEPA [Concomitant]
     Indication: STEM CELL TRANSPLANT
     Dates: start: 20040702, end: 20040710
  3. NEUTROGIN [Concomitant]
     Dates: start: 20040714, end: 20040724
  4. KYTRIL [Concomitant]
     Route: 042
     Dates: start: 20040702, end: 20040719
  5. DIAMOX [Concomitant]
     Dosage: 150MG TWICE PER DAY
     Dates: start: 20040701, end: 20040711
  6. PRODIF [Concomitant]
     Route: 042
     Dates: start: 20040714, end: 20040717
  7. UNKNOWN [Concomitant]
     Route: 042
     Dates: start: 20040711, end: 20040725
  8. FIRSTCIN [Concomitant]
     Dosage: 350MG THREE TIMES PER DAY
     Route: 042
     Dates: start: 20040713, end: 20040715
  9. ATARAX [Concomitant]
     Dates: start: 20040713, end: 20040713
  10. SOLU-CORTEF [Concomitant]
     Dates: start: 20040713, end: 20040713
  11. CARBENIN [Concomitant]
     Dosage: 200MG THREE TIMES PER DAY
     Route: 042
     Dates: start: 20040715, end: 20040720
  12. AMIKACIN SULFATE [Concomitant]
     Dosage: 50MG SEVEN TIMES PER DAY
     Dates: start: 20040715, end: 20040720
  13. MEROPEN [Concomitant]
     Dosage: 300MG THREE TIMES PER DAY
     Route: 042
     Dates: start: 20040720, end: 20040726
  14. TARGOCID [Concomitant]
     Dosage: 120MG TWICE PER DAY
     Route: 042
     Dates: start: 20040720, end: 20040725
  15. FUNGIZONE [Concomitant]
     Route: 048
     Dates: start: 20040623, end: 20040723
  16. BAKTAR [Concomitant]
     Route: 048
     Dates: start: 20040623
  17. NEUQUINON [Concomitant]
     Route: 048
     Dates: start: 20040623, end: 20040806
  18. POLYMYXIN B SULFATE [Concomitant]
     Route: 048
     Dates: start: 20040629, end: 20040728
  19. ADSORBIN [Concomitant]
     Route: 048
     Dates: start: 20040713, end: 20040731
  20. MIYA BM [Concomitant]
     Route: 048
     Dates: start: 20040713, end: 20040731

REACTIONS (5)
  - ABDOMINAL PAIN [None]
  - DIARRHOEA [None]
  - SEPSIS [None]
  - THERAPY NON-RESPONDER [None]
  - VOMITING [None]
